APPROVED DRUG PRODUCT: POLYTRIM
Active Ingredient: POLYMYXIN B SULFATE; TRIMETHOPRIM SULFATE
Strength: 10,000 UNITS/ML;EQ 1MG BASE/ML **Federal Register determination that product was not discontinued or withdrawn for safety or effectiveness reasons**
Dosage Form/Route: SOLUTION/DROPS;OPHTHALMIC
Application: N050567 | Product #001
Applicant: ALLERGAN INC
Approved: Oct 20, 1988 | RLD: Yes | RS: No | Type: DISCN